FAERS Safety Report 4294251-7 (Version None)
Quarter: 2004Q1

REPORT INFORMATION
  Report Type: 
  Country: None (occurrence: None)
  Receive Date: 20040211
  Receipt Date: 20030822
  Transmission Date: 20041129
  Serious: No
  Sender: FDA-Public Use
  Company Number: US-BRISTOL-MYERS SQUIBB COMPANY-12391009

PATIENT
  Age: 43 Year
  Sex: Female
  Weight: 68 kg

DRUGS (2)
  1. ULTRAVATE [Suspect]
     Indication: PSORIASIS
     Route: 061
     Dates: start: 20030101
  2. PROPYLTHIOURACIL [Concomitant]

REACTIONS (4)
  - FEELING JITTERY [None]
  - HEART RATE INCREASED [None]
  - PSORIASIS [None]
  - VISION BLURRED [None]
